FAERS Safety Report 5465404-7 (Version None)
Quarter: 2007Q3

REPORT INFORMATION
  Report Type: 
  Country: None (occurrence: None)
  Receive Date: 20070920
  Receipt Date: 20070920
  Transmission Date: 20080115
  Serious: No
  Sender: FDA-Public Use
  Company Number: None

PATIENT
  Age: 85 Year
  Sex: Male

DRUGS (1)
  1. TERAZOSIN HCL [Suspect]
     Dosage: 2MG HS PO
     Route: 048
     Dates: start: 20060605, end: 20070531

REACTIONS (2)
  - DIZZINESS [None]
  - SEDATION [None]
